FAERS Safety Report 21852787 (Version 3)
Quarter: 2023Q1

REPORT INFORMATION
  Report Type: Report from Study
  Country: JP (occurrence: JP)
  Receive Date: 20230112
  Receipt Date: 20230127
  Transmission Date: 20230417
  Serious: Yes (Death, Life-Threatening, Hospitalization, Other)
  Sender: FDA-Public Use
  Company Number: JP-TAKEDA-2023TJP000210

PATIENT
  Age: 94 Year
  Sex: Female
  Weight: 53.2 kg

DRUGS (1)
  1. BRIGATINIB [Suspect]
     Active Substance: BRIGATINIB
     Indication: Non-small cell lung cancer
     Dosage: 90 MILLIGRAM, QD
     Route: 048
     Dates: start: 20230106, end: 20230108

REACTIONS (5)
  - Respiratory failure [Fatal]
  - Renal failure [Fatal]
  - Multiple organ dysfunction syndrome [Fatal]
  - Cardio-respiratory arrest [Unknown]
  - Interstitial lung disease [Unknown]

NARRATIVE: CASE EVENT DATE: 20230101
